FAERS Safety Report 18622483 (Version 1)
Quarter: 2020Q4

REPORT INFORMATION
  Report Type: Spontaneous
  Country: US (occurrence: US)
  Receive Date: 20201215
  Receipt Date: 20201215
  Transmission Date: 20210114
  Serious: Yes (Death)
  Sender: FDA-Public Use
  Company Number: None

PATIENT
  Age: 66 Year
  Sex: Female

DRUGS (8)
  1. PAPYA ENZYME CHEWABLE TABLET [Concomitant]
  2. TUMERIC 500 MG CAPSULE [Concomitant]
  3. CAPECITABINE. [Suspect]
     Active Substance: CAPECITABINE
     Indication: TRIPLE POSITIVE BREAST CANCER
     Dosage: ?          OTHER FREQUENCY:TID X1 WK,1 WK OFF;?
     Route: 048
     Dates: start: 20201123
  4. VITAMIN B12 2000 MCG [Concomitant]
  5. CATS CLAW 250MG CAPSULE [Concomitant]
  6. ZARXIO [Suspect]
     Active Substance: FILGRASTIM-SNDZ
     Indication: NEUTROPENIA
     Dosage: ?          OTHER FREQUENCY:ONCE IF WBC{3.0;?
     Route: 058
  7. MAGNESIUM 250 MG TABLET [Concomitant]
  8. VITAMIN D3 1,000 UNIT [Concomitant]

REACTIONS (2)
  - Malignant neoplasm progression [None]
  - Breast cancer [None]

NARRATIVE: CASE EVENT DATE: 20201212
